FAERS Safety Report 5519759-5 (Version None)
Quarter: 2007Q4

REPORT INFORMATION
  Report Type: 
  Country: None (occurrence: None)
  Receive Date: 20071116
  Receipt Date: 20070906
  Transmission Date: 20080405
  Serious: No
  Sender: FDA-Public Use
  Company Number: A0668677A

PATIENT
  Age: 49 Year
  Sex: Female
  Weight: 145 kg

DRUGS (6)
  1. COREG CR [Suspect]
     Dosage: 10MG PER DAY
     Route: 048
     Dates: start: 20070716, end: 20070717
  2. LIPITOR [Concomitant]
  3. LASIX [Concomitant]
  4. ACCUPRIL [Concomitant]
  5. DIGITEK [Concomitant]
  6. ATIVAN [Concomitant]

REACTIONS (1)
  - DRUG INEFFECTIVE [None]
